FAERS Safety Report 7730778-0 (Version None)
Quarter: 2011Q3

REPORT INFORMATION
  Report Type: 
  Country: None (occurrence: None)
  Receive Date: 20110906
  Receipt Date: 20110822
  Transmission Date: 20111222
  Serious: Yes (Hospitalization)
  Sender: FDA-Public Use
  Company Number: DE-ELI_LILLY_AND_COMPANY-DE201108007099

PATIENT
  Age: 40 Year
  Sex: Male

DRUGS (1)
  1. OLANZAPINE [Suspect]
     Dosage: 405 MG, UNK

REACTIONS (2)
  - AGGRESSION [None]
  - SEDATION [None]
